FAERS Safety Report 20238558 (Version 1)
Quarter: 2021Q4

REPORT INFORMATION
  Report Type: Spontaneous
  Country: US (occurrence: None)
  Receive Date: 20211227
  Receipt Date: 20211227
  Transmission Date: 20220303
  Serious: No
  Sender: FDA-Public Use
  Company Number: None

PATIENT
  Sex: Female

DRUGS (1)
  1. OTEZLA [Suspect]
     Active Substance: APREMILAST
     Indication: Psoriatic arthropathy
     Dosage: FREQUENCY : 30 MG TWICE A DAY;ORAL?
     Route: 048
     Dates: start: 20210624

REACTIONS (4)
  - Knee arthroplasty [None]
  - Therapeutic product effect decreased [None]
  - Arthralgia [None]
  - Rash [None]
